FAERS Safety Report 8232927-7 (Version None)
Quarter: 2012Q1

REPORT INFORMATION
  Report Type: 
  Country: None (occurrence: None)
  Receive Date: 20120325
  Receipt Date: 20120315
  Transmission Date: 20120608
  Serious: Yes (Hospitalization)
  Sender: FDA-Public Use
  Company Number: US-VERTEX PHARMACEUTICALS INC.-AE-2012-001938

PATIENT
  Sex: Male
  Weight: 74.91 kg

DRUGS (4)
  1. RIBAVIRIN [Concomitant]
     Route: 048
     Dates: start: 20120206
  2. PEGASYS [Concomitant]
     Indication: HEPATITIS C
     Route: 058
     Dates: start: 20111118
  3. INCIVEK [Suspect]
     Indication: HEPATITIS C
     Route: 048
     Dates: start: 20111119, end: 20120201
  4. RIBAVIRIN [Concomitant]
     Indication: HEPATITIS C
     Route: 048
     Dates: start: 20111119, end: 20120206

REACTIONS (11)
  - DEHYDRATION [None]
  - DYSPNOEA [None]
  - FATIGUE [None]
  - ASTHENIA [None]
  - RED BLOOD CELL COUNT DECREASED [None]
  - CHILLS [None]
  - DRY MOUTH [None]
  - ANORECTAL DISCOMFORT [None]
  - INSOMNIA [None]
  - OEDEMA PERIPHERAL [None]
  - PRURITUS [None]
